FAERS Safety Report 5079019-6 (Version None)
Quarter: 2006Q3

REPORT INFORMATION
  Report Type: 
  Country: None (occurrence: None)
  Receive Date: 20060808
  Receipt Date: 20060728
  Transmission Date: 20061208
  Serious: Yes (Hospitalization)
  Sender: FDA-Public Use
  Company Number: 227325

PATIENT
  Age: 54 Year
  Sex: Female

DRUGS (15)
  1. HERCEPTIN [Suspect]
     Indication: BREAST CANCER
     Dosage: 170 MG, 1/WEEK, INTRAVENOUS
     Route: 042
     Dates: start: 20040510
  2. RADIATION (RADIATION THERAPY) [Concomitant]
  3. ADR (DOXORUBICIN/DOXORUBICIN HYDROCHLORIDE) [Concomitant]
  4. CTX (CYCLOPHOSPHAMIDE) [Concomitant]
  5. TAXOL [Concomitant]
  6. SYNTHROID [Concomitant]
  7. SEREVENT [Concomitant]
  8. LASIX [Concomitant]
  9. KYTRIL [Concomitant]
  10. EMEND [Concomitant]
  11. ALPRAZOLAM [Concomitant]
  12. ESTRING [Concomitant]
  13. DOXEPIN (DOXEPIN HYDROCHLORIDE) [Concomitant]
  14. MVI (MULTIVITAMINS NOS) [Concomitant]
  15. LEXAPRO [Concomitant]

REACTIONS (4)
  - BRONCHITIS [None]
  - CEREBROVASCULAR ACCIDENT [None]
  - HAEMOPTYSIS [None]
  - MIGRAINE [None]
